FAERS Safety Report 8649520 (Version 2)
Quarter: 2013Q1

REPORT INFORMATION
  Report Type: Spontaneous
  Country: DK (occurrence: None)
  Receive Date: 20120621
  Receipt Date: 20130208
  Transmission Date: 20140127
  Serious: Yes (Disabling)
  Sender: FDA-Public Use
  Company Number: 2012MA007309

PATIENT
  Age: 36 Year
  Sex: Female

DRUGS (4)
  1. EPIRUBICIN HYDROCHLORIDE [Suspect]
     Indication: BREAST CANCER
     Dates: start: 20081006
  2. CYCLOPHOSPHAMIDE [Concomitant]
  3. TAXOTERE [Concomitant]
  4. TAXOTERE [Concomitant]

REACTIONS (5)
  - Cardiac failure [None]
  - Heart transplant [None]
  - Cardiac failure [None]
  - Impaired work ability [None]
  - Pulmonary function test decreased [None]
